FAERS Safety Report 19219915 (Version 1)
Quarter: 2021Q2

REPORT INFORMATION
  Report Type: Spontaneous
  Country: DE (occurrence: DE)
  Receive Date: 20210506
  Receipt Date: 20210506
  Transmission Date: 20210717
  Serious: Yes (Hospitalization, Other)
  Sender: FDA-Public Use
  Company Number: DE-AUROBINDO-AUR-APL-2021-017931

PATIENT
  Age: 65 Year
  Sex: Female

DRUGS (17)
  1. L?THYROXIN [Suspect]
     Active Substance: LEVOTHYROXINE SODIUM
     Indication: PRODUCT USED FOR UNKNOWN INDICATION
     Dosage: 75 MICROGRAM, ONCE A DAY(75 UG, QD)
     Route: 048
  2. LIXIANA [Concomitant]
     Active Substance: EDOXABAN TOSYLATE
     Indication: PRE-EXISTING DISEASE
     Dosage: 60 MILLIGRAM, ONCE A DAY(60 MG, QD)
     Route: 048
  3. AMLODIPINE [Concomitant]
     Active Substance: AMLODIPINE BESYLATE
     Indication: PROPHYLAXIS
     Dosage: 5 MILLIGRAM, ONCE A DAY(5 MG, QD)
     Route: 048
  4. NOVAMINSULFON [Concomitant]
     Active Substance: METAMIZOLE
     Indication: PROPHYLAXIS
     Dosage: DOSE AS REQUIRED, FREQUENCY: INFREQUENT
     Route: 048
  5. ZOLPIDEM [Concomitant]
     Active Substance: ZOLPIDEM TARTRATE
     Indication: PROPHYLAXIS
     Dosage: DOSE AS REQUIRED, FREQUENCY: INFREQUENT
     Route: 048
  6. METOCLOPRAMIDE. [Concomitant]
     Active Substance: METOCLOPRAMIDE
     Indication: PROPHYLAXIS
     Dosage: FREQUENCY: INFREQUENT
     Route: 048
  7. PREGABALIN. [Concomitant]
     Active Substance: PREGABALIN
     Indication: PRE-EXISTING DISEASE
     Dosage: 600 MILLIGRAM, ONCE A DAY(300 MG, BID
     Route: 048
  8. VOMEX [Concomitant]
     Active Substance: DIMENHYDRINATE
     Indication: PROPHYLAXIS
     Dosage: FREQUENCY: INFREQUENT
     Route: 048
  9. ZOMETA [Concomitant]
     Active Substance: ZOLEDRONIC ACID
     Indication: PROPHYLAXIS
     Dosage: 4 MILLIGRAM, CYCLICAL(4 MG, Q4W)
     Route: 042
  10. DEXAMYTREX [Concomitant]
     Active Substance: DEXAMETHASONE SODIUM PHOSPHATE\GENTAMICIN SULFATE
     Indication: PROPHYLAXIS
     Dosage: DOSE AS REQACUIRED, FREQUENCY: INFREQUENT
     Route: 048
  11. HYDROMORPHONE RATIOPHARM [Concomitant]
     Indication: PROPHYLAXIS
     Dosage: 16 MILLIGRAM, ONCE A DAY(8 MG, BID)
     Route: 048
  12. KALINOR [Concomitant]
     Indication: PROPHYLAXIS
     Dosage: UNK UNK, ONCE A DAY
     Route: 048
  13. RAMIPRIL. [Suspect]
     Active Substance: RAMIPRIL
     Indication: PROPHYLAXIS
     Dosage: 10 MILLIGRAM, ONCE A DAY(10 MG, QD)
     Route: 048
  14. TORASEMIDE [Concomitant]
     Active Substance: TORSEMIDE
     Indication: PRE-EXISTING DISEASE
     Dosage: 10 MILLIGRAM, ONCE A DAY(10 MG, QD)
     Route: 048
  15. IDEOS [Concomitant]
     Active Substance: CALCIUM CARBONATE\CHOLECALCIFEROL
     Indication: PROPHYLAXIS
     Dosage: ONCE A DAY(UNK, TID )
     Route: 048
  16. PANTOPRAZOLE [Concomitant]
     Active Substance: PANTOPRAZOLE
     Indication: PROPHYLAXIS
     Dosage: 40 MILLIGRAM, ONCE A DAY(40 MG, QD)
     Route: 048
  17. HYDROMORPHONE [Concomitant]
     Active Substance: HYDROMORPHONE
     Indication: PROPHYLAXIS
     Dosage: DOSE AS REQUIRED , FREQUENCY: INFREQUENT
     Route: 048
     Dates: start: 20190812

REACTIONS (8)
  - Neutropenia [Recovered/Resolved]
  - Tachycardia [Recovered/Resolved]
  - Sepsis [Recovered/Resolved]
  - Disturbance in attention [Recovered/Resolved]
  - Hypotension [Recovered/Resolved]
  - C-reactive protein increased [Recovered/Resolved]
  - Escherichia bacteraemia [Recovered/Resolved]
  - Asthenia [Recovered/Resolved]

NARRATIVE: CASE EVENT DATE: 20210214
